FAERS Safety Report 4622123-4 (Version None)
Quarter: 2005Q1

REPORT INFORMATION
  Report Type: 
  Country: None (occurrence: None)
  Receive Date: 20050328
  Receipt Date: 20050315
  Transmission Date: 20050727
  Serious: Yes (Other)
  Sender: FDA-Public Use
  Company Number: US014711

PATIENT
  Age: 56 Year
  Sex: Male
  Weight: 83.4 kg

DRUGS (13)
  1. FENTANYL CITRATE [Suspect]
     Indication: CANCER PAIN
     Dosage: 1600 UG PRN BUCCAL
     Route: 002
     Dates: start: 20050212, end: 20050215
  2. GABAPENTIN [Suspect]
     Indication: ANALGESIC EFFECT
     Dosage: 600 MG DAILY
     Dates: start: 20040101, end: 20050215
  3. OXYCONTIN [Suspect]
     Indication: ANALGESIC EFFECT
     Dosage: 80 MG DAILY
     Dates: start: 20040101
  4. OXYNORM [Suspect]
     Indication: ANALGESIC EFFECT
     Dosage: 30 MG DAILY
     Dates: start: 20040101
  5. CO-PROXAMOL [Suspect]
     Indication: ANALGESIC EFFECT
     Dosage: 8 TAB/CAP DAILY
     Dates: start: 20041019
  6. PARACETAMOL [Concomitant]
  7. DEXAMETHAZONE-PIX [Concomitant]
  8. LANSOPRAZOLE ^BOEHRINGER INGELHEIM^ [Concomitant]
  9. CAPECITABINE [Concomitant]
  10. MOVICOL [Concomitant]
  11. SENNA [Concomitant]
  12. SPIRONOLACTONE [Concomitant]
  13. OMEPRAZOLE [Concomitant]

REACTIONS (4)
  - COMMUNICATION DISORDER [None]
  - DISORIENTATION [None]
  - DRUG INTERACTION [None]
  - DRUG TOXICITY [None]
